FAERS Safety Report 14502519 (Version 1)
Quarter: 2018Q1

REPORT INFORMATION
  Report Type: Spontaneous
  Country: US (occurrence: US)
  Receive Date: 20180208
  Receipt Date: 20180208
  Transmission Date: 20180509
  Serious: Yes (Other)
  Sender: FDA-Public Use
  Company Number: US-JNJFOC-20180135082

PATIENT
  Sex: Female

DRUGS (1)
  1. NEOSPORIN [Suspect]
     Active Substance: BACITRACIN ZINC\NEOMYCIN SULFATE\POLYMYXIN B SULFATE
     Indication: PRODUCT USED FOR UNKNOWN INDICATION
     Route: 061

REACTIONS (9)
  - Amnesia [Not Recovered/Not Resolved]
  - Logorrhoea [Not Recovered/Not Resolved]
  - Fatigue [Not Recovered/Not Resolved]
  - Hyperhidrosis [Not Recovered/Not Resolved]
  - Drug dependence [Not Recovered/Not Resolved]
  - Chills [Not Recovered/Not Resolved]
  - Restlessness [Not Recovered/Not Resolved]
  - Energy increased [Not Recovered/Not Resolved]
  - Seizure [Not Recovered/Not Resolved]
